FAERS Safety Report 24937875 (Version 1)
Quarter: 2025Q1

REPORT INFORMATION
  Report Type: Spontaneous
  Country: US (occurrence: None)
  Receive Date: 20250206
  Receipt Date: 20250206
  Transmission Date: 20250409
  Serious: No
  Sender: FDA-CTU
  Company Number: None

PATIENT
  Age: 84 Year
  Sex: Female

DRUGS (2)
  1. SYSTANE (HYPROMELLOSE 2910 (4000 MPA.S)) [Suspect]
     Active Substance: HYPROMELLOSE 2910 (4000 MPA.S)
     Indication: Dry eye
  2. XIIDRA [Suspect]
     Active Substance: LIFITEGRAST

REACTIONS (4)
  - Lacrimation increased [None]
  - Application site warmth [None]
  - Thermal burns of eye [None]
  - Conjunctival hyperaemia [None]

NARRATIVE: CASE EVENT DATE: 20250206
